FAERS Safety Report 18098328 (Version 2)
Quarter: 2020Q3

REPORT INFORMATION
  Report Type: Spontaneous
  Country: US (occurrence: US)
  Receive Date: 20200731
  Receipt Date: 20200914
  Transmission Date: 20201103
  Serious: No
  Sender: FDA-Public Use
  Company Number: US-JNJFOC-20200739511

PATIENT
  Age: 43 Year
  Sex: Female
  Weight: 193 kg

DRUGS (8)
  1. SIMPONI [Suspect]
     Active Substance: GOLIMUMAB
     Indication: RHEUMATOID ARTHRITIS
     Route: 058
  2. LISINOPRIL. [Concomitant]
     Active Substance: LISINOPRIL
  3. ARAVA [Concomitant]
     Active Substance: LEFLUNOMIDE
  4. LEXAPRO [Concomitant]
     Active Substance: ESCITALOPRAM OXALATE
  5. GABAPENTIN. [Concomitant]
     Active Substance: GABAPENTIN
  6. KLONOPIN [Concomitant]
     Active Substance: CLONAZEPAM
  7. SIMPONI [Suspect]
     Active Substance: GOLIMUMAB
     Indication: COLITIS ULCERATIVE
  8. ESTRACE [Concomitant]
     Active Substance: ESTRADIOL

REACTIONS (4)
  - Injury associated with device [Unknown]
  - Product dose omission issue [Unknown]
  - Drug delivery system malfunction [Unknown]
  - Accidental exposure to product [Unknown]

NARRATIVE: CASE EVENT DATE: 20200723
